FAERS Safety Report 9841903 (Version 7)
Quarter: 2014Q4

REPORT INFORMATION
  Report Type: Spontaneous
  Country: ES (occurrence: ES)
  Receive Date: 20140124
  Receipt Date: 20141223
  Transmission Date: 20150529
  Serious: Yes (Hospitalization, Other)
  Sender: FDA-Public Use
  Company Number: ES-AMGEN-ESPSP2013081010

PATIENT
  Age: 43 Year
  Sex: Female

DRUGS (17)
  1. ENBREL [Suspect]
     Active Substance: ETANERCEPT
     Dosage: 25 MG WEEKLY, ON FRIDAYS
     Route: 058
     Dates: start: 2014, end: 2014
  2. ENBREL [Suspect]
     Active Substance: ETANERCEPT
     Dosage: UNK, EVERY 15 DAYS
     Route: 058
     Dates: start: 201403, end: 2014
  3. METOJECT [Suspect]
     Active Substance: METHOTREXATE SODIUM
     Dosage: 10 MG, WEEKLY
     Route: 030
     Dates: start: 201311, end: 20140115
  4. METOJECT [Suspect]
     Active Substance: METHOTREXATE SODIUM
     Dosage: 20 MG, WEEKLY
     Route: 065
     Dates: start: 201403, end: 201410
  5. OMEPRAZOLE. [Concomitant]
     Active Substance: OMEPRAZOLE
     Indication: PROPHYLAXIS AGAINST GASTROINTESTINAL ULCER
     Dosage: 40 MG, ONCE DAILY
  6. METOJECT [Suspect]
     Active Substance: METHOTREXATE SODIUM
     Indication: RHEUMATOID ARTHRITIS
     Dosage: 25 MG, WEEKLY, EVERY FRIDAY
     Route: 030
     Dates: end: 201311
  7. DROSPIRENONE [Concomitant]
     Active Substance: DROSPIRENONE
     Indication: UTERINE LEIOMYOMA
  8. ADIRO [Concomitant]
     Active Substance: ASPIRIN
     Indication: CARDIOLIPIN ANTIBODY POSITIVE
     Dosage: 100 MG, 1XDAY
  9. DROSPIRENONE [Concomitant]
     Active Substance: DROSPIRENONE
     Indication: ORAL CONTRACEPTION
     Dosage: ONE DOSAGE FORM, ONCE DAILY
  10. ETHINYLESTRADIOL [Concomitant]
     Active Substance: ETHINYL ESTRADIOL
     Indication: UTERINE LEIOMYOMA
  11. FURANTOINA [Concomitant]
     Indication: PROPHYLAXIS URINARY TRACT INFECTION
     Dosage: 1 DF, 1X/DAY, FOR 6 MONTHS
     Route: 048
  12. ENBREL [Suspect]
     Active Substance: ETANERCEPT
     Dosage: 15 MG, UNK
     Route: 065
     Dates: end: 201411
  13. INFLUENZA VACCINE [Concomitant]
     Active Substance: INFLUENZA VIRUS VACCINE
     Dosage: UNK
  14. ENBREL [Suspect]
     Active Substance: ETANERCEPT
     Indication: RHEUMATOID ARTHRITIS
     Dosage: 50 MG WEEKLY, ON FRIDAYS
     Route: 058
     Dates: start: 20131008, end: 20140114
  15. ENBREL [Suspect]
     Active Substance: ETANERCEPT
     Dosage: 25 MG, WEEKLY, ON FRIDAYS
     Route: 058
     Dates: start: 2014, end: 201410
  16. YASMIN [Concomitant]
     Active Substance: DROSPIRENONE\ETHINYL ESTRADIOL
     Indication: POLYCYSTIC OVARIES
     Dosage: ONCE DAILY
  17. ETHINYLESTRADIOL [Concomitant]
     Active Substance: ETHINYL ESTRADIOL
     Indication: ORAL CONTRACEPTION
     Dosage: ONE DOSAGE FORM, ONCE DAILY

REACTIONS (27)
  - Impaired healing [Unknown]
  - Volvulus [Unknown]
  - Injection site reaction [Not Recovered/Not Resolved]
  - Nausea [Recovered/Resolved]
  - Dysuria [Not Recovered/Not Resolved]
  - Vomiting [Not Recovered/Not Resolved]
  - Chills [Not Recovered/Not Resolved]
  - Mobility decreased [Unknown]
  - Urinary tract infection [Unknown]
  - Injection site discolouration [Unknown]
  - Diarrhoea [Not Recovered/Not Resolved]
  - Fibrosis [Unknown]
  - Pyelonephritis [Not Recovered/Not Resolved]
  - Injection site haematoma [Not Recovered/Not Resolved]
  - Influenza [Recovered/Resolved]
  - Spinal disorder [Unknown]
  - Condition aggravated [Unknown]
  - Weight increased [Not Recovered/Not Resolved]
  - Rheumatoid arthritis [Recovering/Resolving]
  - Hyperkeratosis [Not Recovered/Not Resolved]
  - Fatigue [Not Recovered/Not Resolved]
  - Injection site mass [Unknown]
  - Decreased immune responsiveness [Unknown]
  - Pain in extremity [Unknown]
  - Uterine leiomyoma [Unknown]
  - Injection site pruritus [Not Recovered/Not Resolved]
  - Injection site erythema [Not Recovered/Not Resolved]

NARRATIVE: CASE EVENT DATE: 2013
